FAERS Safety Report 9235543 (Version 1)
Quarter: 2013Q2

REPORT INFORMATION
  Report Type: Spontaneous
  Country: US (occurrence: None)
  Receive Date: 20130416
  Receipt Date: 20130416
  Transmission Date: 20140414
  Serious: No
  Sender: FDA-Public Use
  Company Number: None

PATIENT
  Sex: Male

DRUGS (2)
  1. PEGASYS PFS 180MCG ABBOTT [Suspect]
     Indication: HEPATITIS C
     Dosage: 180 MCG ONCE A WEEK SUBCUTANEOULSY
     Route: 058
     Dates: start: 20130228
  2. RIBAVIRIN [Suspect]
     Indication: HEPATITIS C
     Route: 048
     Dates: start: 20130228

REACTIONS (3)
  - Decreased appetite [None]
  - Dyspnoea [None]
  - Fatigue [None]
